FAERS Safety Report 15448265 (Version 1)
Quarter: 2018Q3

REPORT INFORMATION
  Report Type: Spontaneous
  Country: US (occurrence: US)
  Receive Date: 20180926
  Receipt Date: 20180926
  Transmission Date: 20181010
  Serious: Yes (Other)
  Sender: FDA-Public Use
  Company Number: None

PATIENT
  Age: 57 Year
  Sex: Female
  Weight: 51.3 kg

DRUGS (8)
  1. MAGNESIUM [Concomitant]
     Active Substance: MAGNESIUM
  2. ACYCLOVIR. [Concomitant]
     Active Substance: ACYCLOVIR
  3. PROMACTA [Suspect]
     Active Substance: ELTROMBOPAG OLAMINE
     Indication: APLASTIC ANAEMIA
     Route: 048
     Dates: start: 20180629
  4. CYCLOSPORINE. [Concomitant]
     Active Substance: CYCLOSPORINE
  5. FOLIC ACID. [Concomitant]
     Active Substance: FOLIC ACID
  6. FLUCONAZOLE. [Concomitant]
     Active Substance: FLUCONAZOLE
  7. MEPRON [Concomitant]
     Active Substance: ATOVAQUONE
  8. PROMACTA [Suspect]
     Active Substance: ELTROMBOPAG OLAMINE
     Indication: BONE MARROW DISORDER
     Route: 048
     Dates: start: 20180629

REACTIONS (1)
  - Platelet count increased [None]

NARRATIVE: CASE EVENT DATE: 20180926
